FAERS Safety Report 18228626 (Version 1)
Quarter: 2020Q3

REPORT INFORMATION
  Report Type: Spontaneous
  Country: US (occurrence: US)
  Receive Date: 20200903
  Receipt Date: 20200903
  Transmission Date: 20201103
  Serious: No
  Sender: FDA-Public Use
  Company Number: US-BECTON DICKINSON-2020BDN00002

PATIENT
  Age: 61 Year
  Sex: Male
  Weight: 99.77 kg

DRUGS (1)
  1. CHLORAPREP ONE?STEP FREPP [Suspect]
     Active Substance: CHLORHEXIDINE GLUCONATE\ISOPROPYL ALCOHOL
     Indication: INFECTION PROPHYLAXIS
     Dosage: UNK
     Route: 061
     Dates: start: 20191212, end: 20191212

REACTIONS (3)
  - Scratch [Unknown]
  - Wound haemorrhage [Unknown]
  - Product package associated injury [Unknown]

NARRATIVE: CASE EVENT DATE: 20191212
